FAERS Safety Report 9400323 (Version 1)
Quarter: 2013Q3

REPORT INFORMATION
  Report Type: Spontaneous
  Country: US (occurrence: US)
  Receive Date: 20130715
  Receipt Date: 20130715
  Transmission Date: 20140515
  Serious: No
  Sender: FDA-Public Use
  Company Number: US-BAUSCH-BL-2013-002139

PATIENT
  Age: 64 Year
  Sex: Female

DRUGS (3)
  1. LATANOPROST OPHTHALMIC SOLUTION 0.005% [Suspect]
     Indication: OPEN ANGLE GLAUCOMA
     Dosage: 1 DROP; AT BEDTIME; LEFT EYE
     Route: 047
     Dates: end: 20130320
  2. DORZOLAMIDE [Concomitant]
     Indication: OPEN ANGLE GLAUCOMA
     Dosage: 1 DROP; TWICE A DAY; LEFT EYE
     Route: 047
     Dates: start: 201207
  3. HYPROMELLOSE [Concomitant]
     Dosage: AS REQUIRED; OPHTHALMIC
     Route: 047

REACTIONS (1)
  - Intraocular pressure increased [Recovered/Resolved]
